FAERS Safety Report 8311168-9 (Version None)
Quarter: 2012Q2

REPORT INFORMATION
  Report Type: 
  Country: None (occurrence: None)
  Receive Date: 20120425
  Receipt Date: 20120420
  Transmission Date: 20120825
  Serious: Yes (Death, Other)
  Sender: FDA-Public Use
  Company Number: US-JNJFOC-20120408746

PATIENT

DRUGS (4)
  1. IMATINIB MESYLATE [Suspect]
     Indication: ACUTE MYELOID LEUKAEMIA RECURRENT
     Route: 048
  2. CLADRIBINE [Suspect]
     Indication: ACUTE MYELOID LEUKAEMIA RECURRENT
     Route: 042
  3. CYTARABINE [Suspect]
     Indication: ACUTE MYELOID LEUKAEMIA RECURRENT
     Route: 042
  4. NEUPOGEN [Suspect]
     Indication: ACUTE MYELOID LEUKAEMIA RECURRENT
     Route: 058

REACTIONS (1)
  - HAEMORRHAGE [None]
